FAERS Safety Report 6041153-1 (Version None)
Quarter: 2009Q1

REPORT INFORMATION
  Report Type: 
  Country: None (occurrence: None)
  Receive Date: 20090116
  Receipt Date: 20080905
  Transmission Date: 20090719
  Serious: Yes (Other)
  Sender: FDA-Public Use
  Company Number: US-BRISTOL-MYERS SQUIBB COMPANY-14326680

PATIENT
  Age: 9 Year
  Sex: Male

DRUGS (1)
  1. ABILIFY [Suspect]
     Indication: ANXIETY
     Dates: start: 20060101

REACTIONS (1)
  - PLATELET COUNT DECREASED [None]
